FAERS Safety Report 22322831 (Version 1)
Quarter: 2023Q2

REPORT INFORMATION
  Report Type: Spontaneous
  Country: US (occurrence: US)
  Receive Date: 20230516
  Receipt Date: 20230516
  Transmission Date: 20230721
  Serious: No
  Sender: FDA-Public Use
  Company Number: AXS2022-243

PATIENT
  Age: 45 Year
  Sex: Female

DRUGS (2)
  1. SUNOSI [Suspect]
     Active Substance: SOLRIAMFETOL
     Indication: Somnolence
     Dosage: 150 MG
  2. SYMBICORT [Concomitant]
     Active Substance: BUDESONIDE\FORMOTEROL FUMARATE DIHYDRATE
     Indication: Cough variant asthma
     Dosage: 160/4.52 PUFFS

REACTIONS (5)
  - Somnolence [Unknown]
  - Condition aggravated [Unknown]
  - Poor quality sleep [Unknown]
  - Middle insomnia [Unknown]
  - Initial insomnia [Unknown]
